FAERS Safety Report 23032516 (Version 9)
Quarter: 2024Q3

REPORT INFORMATION
  Report Type: Spontaneous
  Country: US (occurrence: US)
  Receive Date: 20231005
  Receipt Date: 20240820
  Transmission Date: 20241017
  Serious: Yes (Other)
  Sender: SANOFI AVENTIS
  Company Number: US-SA-SAC20231004001407

PATIENT
  Age: 1 Year
  Sex: Male
  Weight: 14.51 kg

DRUGS (15)
  1. ALPROLIX [Suspect]
     Active Substance: EFTRENONACOG ALFA
     Indication: Factor IX deficiency
     Dosage: 750 U, QW (500 UNITS+250 UNITS)
     Route: 042
     Dates: start: 202307
  2. ALPROLIX [Suspect]
     Active Substance: EFTRENONACOG ALFA
     Indication: Factor IX deficiency
     Dosage: 750 U, QW (500 UNITS+250 UNITS)
     Route: 042
     Dates: start: 202307
  3. ALPROLIX [Suspect]
     Active Substance: EFTRENONACOG ALFA
     Dosage: 750 U PRN
     Route: 042
     Dates: start: 202307
  4. ALPROLIX [Suspect]
     Active Substance: EFTRENONACOG ALFA
     Dosage: 750 U PRN
     Route: 042
     Dates: start: 202307
  5. ALPROLIX [Suspect]
     Active Substance: EFTRENONACOG ALFA
     Dosage: 1300 U, EVERY 3 DAYS AS NEEDED (PRN)
     Route: 042
  6. ALPROLIX [Suspect]
     Active Substance: EFTRENONACOG ALFA
     Dosage: 1300 U, EVERY 3 DAYS AS NEEDED (PRN)
     Route: 042
  7. ALPROLIX [Suspect]
     Active Substance: EFTRENONACOG ALFA
     Dosage: 1300 U, QW
     Route: 042
  8. ALPROLIX [Suspect]
     Active Substance: EFTRENONACOG ALFA
     Dosage: 1300 U, QW
     Route: 042
  9. ALPROLIX [Suspect]
     Active Substance: EFTRENONACOG ALFA
     Dosage: 780 U, QW
     Route: 042
  10. ALPROLIX [Suspect]
     Active Substance: EFTRENONACOG ALFA
     Dosage: 780 U, QW
     Route: 042
  11. ALPROLIX [Suspect]
     Active Substance: EFTRENONACOG ALFA
     Dosage: 1500 U, PRN
     Route: 042
  12. ALPROLIX [Suspect]
     Active Substance: EFTRENONACOG ALFA
     Dosage: 1500 U, PRN
     Route: 042
  13. ALPROLIX [Suspect]
     Active Substance: EFTRENONACOG ALFA
     Dosage: 780 IU, QW
     Route: 042
     Dates: start: 202407
  14. ALPROLIX [Suspect]
     Active Substance: EFTRENONACOG ALFA
     Dosage: 780 IU, QW
     Route: 042
     Dates: start: 202407
  15. SODIUM CHLORIDE [Concomitant]
     Active Substance: SODIUM CHLORIDE
     Dosage: UNK

REACTIONS (10)
  - Haemorrhage [Unknown]
  - Dyspnoea [Unknown]
  - Scar [Unknown]
  - Haemorrhage [Unknown]
  - Mouth haemorrhage [Unknown]
  - Fall [Unknown]
  - Head injury [Unknown]
  - Tongue haemorrhage [Recovered/Resolved]
  - Tongue biting [Unknown]
  - Traumatic haemorrhage [Unknown]

NARRATIVE: CASE EVENT DATE: 20230101
